FAERS Safety Report 6010791-4 (Version None)
Quarter: 2008Q4

REPORT INFORMATION
  Report Type: 
  Country: None (occurrence: None)
  Receive Date: 20081218
  Receipt Date: 20081208
  Transmission Date: 20090506
  Serious: Yes (Other)
  Sender: FDA-Public Use
  Company Number: PHBS2008IT06638

PATIENT
  Age: 56 Year
  Sex: Male

DRUGS (2)
  1. IMATINIB MESYLATE [Suspect]
     Indication: CHRONIC MYELOID LEUKAEMIA
     Dosage: 400 MG/DAY
     Dates: start: 20030401, end: 20050201
  2. IMATINIB MESYLATE [Suspect]
     Dosage: 400 MG/DAY FOR 20 DAYS/MONTHS

REACTIONS (1)
  - ADENOCARCINOMA [None]
